FAERS Safety Report 8221496-3 (Version None)
Quarter: 2012Q1

REPORT INFORMATION
  Report Type: 
  Country: None (occurrence: None)
  Receive Date: 20120320
  Receipt Date: 20120314
  Transmission Date: 20120608
  Serious: Yes (Life-Threatening, Hospitalization)
  Sender: FDA-Public Use
  Company Number: PHHY2012ES022101

PATIENT
  Age: 63 Year
  Sex: Female

DRUGS (10)
  1. TACROLIMUS [Suspect]
     Indication: LIVER TRANSPLANT
     Dosage: 2 MG, QD
     Route: 048
     Dates: start: 20110301
  2. CALCIUM CARBONATE [Concomitant]
     Dosage: UNK UKN, UNK
  3. LEDERFOLIN [Concomitant]
     Dosage: UNK UKN, UNK
  4. IMURAN [Suspect]
     Indication: LIVER TRANSPLANT
     Dosage: 50 MG, QD
     Route: 048
     Dates: start: 20110914
  5. SIMVASTATIN [Concomitant]
     Indication: HYPERLIPIDAEMIA
     Dosage: 10 MG, QD
     Route: 048
     Dates: start: 20110401
  6. MYFORTIC [Suspect]
     Indication: LIVER TRANSPLANT
     Dosage: 360 MG, QD
     Route: 048
     Dates: start: 20110301, end: 20110909
  7. SEPTRIN FORTE [Concomitant]
     Dosage: UNK UKN, UNK
  8. LOSARTAN POTASSIUM [Concomitant]
     Indication: HYPERTENSION
     Dosage: 50 MG, QD
     Route: 048
     Dates: start: 20110901
  9. PREDNISONE [Suspect]
     Indication: LIVER TRANSPLANT
     Dosage: 10 MG, QD
     Route: 048
     Dates: start: 20110301
  10. ZEFFIX [Concomitant]
     Dosage: UNK UKN, UNK

REACTIONS (5)
  - ATLANTOAXIAL INSTABILITY [None]
  - ANAEMIA [None]
  - LEUKOPENIA [None]
  - PLATELET COUNT DECREASED [None]
  - ASTHENIA [None]
